FAERS Safety Report 9907860 (Version 1)
Quarter: 2014Q1

REPORT INFORMATION
  Report Type: Spontaneous
  Country: US (occurrence: US)
  Receive Date: 20140219
  Receipt Date: 20140219
  Transmission Date: 20141002
  Serious: No
  Sender: FDA-Public Use
  Company Number: US-BIOGENIDEC-2014BI014243

PATIENT
  Age: 62 Year
  Sex: Female

DRUGS (8)
  1. TECFIDERA [Suspect]
     Indication: MULTIPLE SCLEROSIS
     Route: 048
  2. AMPYRA [Concomitant]
  3. CENTRUM SILVER ULTRA WOMENS [Concomitant]
  4. GLUCOSAMINE CHONDROITIN COMPLX [Concomitant]
  5. LUTEIN PLUS BILBERRY [Concomitant]
  6. OMEGA-3-6-9 [Concomitant]
  7. VITAMIN D-3 [Concomitant]
  8. VITAMIN E [Concomitant]

REACTIONS (1)
  - Back pain [Unknown]
